FAERS Safety Report 8857659 (Version 1)
Quarter: 2012Q4

REPORT INFORMATION
  Report Type: 
  Country: US (occurrence: US)
  Receive Date: 20121024
  Receipt Date: 20121024
  Transmission Date: 20130627
  Serious: No
  Sender: FDA-Public Use
  Company Number: US-PFIZER INC-2012261929

PATIENT
  Age: 19 Year
  Sex: Female

DRUGS (1)
  1. RAPAMUNE [Suspect]
     Indication: AUTOIMMUNE NEUTROPENIA
     Dosage: 2 mg, 2x/day
     Dates: start: 20120821, end: 20121015

REACTIONS (3)
  - Off label use [Unknown]
  - Rash [Unknown]
  - Oedema peripheral [Unknown]
